FAERS Safety Report 7945576-2 (Version None)
Quarter: 2011Q4

REPORT INFORMATION
  Report Type: 
  Country: None (occurrence: None)
  Receive Date: 20111125
  Receipt Date: 20111114
  Transmission Date: 20120403
  Serious: Yes (Hospitalization)
  Sender: FDA-Public Use
  Company Number: 2011SP046152

PATIENT
  Age: 51 Year
  Sex: Female
  Weight: 49.4 kg

DRUGS (29)
  1. ADOFEED [Concomitant]
  2. MIYA-BM [Concomitant]
  3. SELBEX [Concomitant]
  4. ACETAMINOPHEN [Concomitant]
  5. GASTER /00661201/ [Concomitant]
  6. RIBAVIRIN [Suspect]
     Indication: HEPATITIS C
     Dosage: 300 MG;BID;
     Dates: start: 20110915, end: 20110915
  7. RIBAVIRIN [Suspect]
     Indication: HEPATITIS C
     Dosage: 300 MG;BID;
     Dates: start: 20110922, end: 20110922
  8. RIBAVIRIN [Suspect]
     Indication: HEPATITIS C
     Dosage: 300 MG;BID;
     Dates: start: 20110916, end: 20110916
  9. RIBAVIRIN [Suspect]
     Indication: HEPATITIS C
     Dosage: 300 MG;BID;
     Dates: start: 20110920, end: 20110920
  10. RIBAVIRIN [Suspect]
     Indication: HEPATITIS C
     Dosage: 300 MG;BID;
     Dates: start: 20110921, end: 20110921
  11. RIBAVIRIN [Suspect]
     Indication: HEPATITIS C
     Dosage: 300 MG;BID;
     Dates: start: 20110929, end: 20111006
  12. RIBAVIRIN [Suspect]
     Indication: HEPATITIS C
     Dosage: 300 MG;BID;
     Dates: start: 20111007, end: 20111013
  13. RIBAVIRIN [Suspect]
     Indication: HEPATITIS C
     Dosage: 300 MG;BID;
     Dates: start: 20110919, end: 20110919
  14. RIBAVIRIN [Suspect]
     Indication: HEPATITIS C
     Dosage: 300 MG;BID;
     Dates: start: 20110928, end: 20111005
  15. RIBAVIRIN [Suspect]
     Indication: HEPATITIS C
     Dosage: 300 MG;BID;
     Dates: start: 20110918, end: 20110918
  16. RIBAVIRIN [Suspect]
     Indication: HEPATITIS C
     Dosage: 300 MG;BID;
     Dates: start: 20111006, end: 20111012
  17. RIBAVIRIN [Suspect]
     Indication: HEPATITIS C
     Dosage: 300 MG;BID;
     Dates: start: 20110917, end: 20110917
  18. PEG-INTRON [Suspect]
     Indication: HEPATITIS C
     Dosage: 80 MCG;QW
     Dates: start: 20111006, end: 20111006
  19. PEG-INTRON [Suspect]
     Indication: HEPATITIS C
     Dosage: 80 MCG;QW
     Dates: start: 20110922, end: 20110922
  20. PEG-INTRON [Suspect]
     Indication: HEPATITIS C
     Dosage: 80 MCG;QW
     Dates: start: 20110928, end: 20110928
  21. PEG-INTRON [Suspect]
     Indication: HEPATITIS C
     Dosage: 80 MCG;QW
     Dates: start: 20110915, end: 20110915
  22. AMLODIPINE BESYLATE [Concomitant]
  23. PRIMPERAN /0041901/ [Concomitant]
  24. SOLDEM 3A [Concomitant]
  25. ENSURE /00472201/ [Concomitant]
  26. PEGINTERFERON ALFA-2B [Suspect]
     Indication: HEPATITIS C
     Dosage: 300 MG;BID
     Dates: start: 20110915, end: 20110928
  27. PEGINTERFERON ALFA-2B [Suspect]
     Indication: HEPATITIS C
     Dosage: 300 MG;BID
     Dates: start: 20110929, end: 20111013
  28. PEGINTERFERON ALFA-2B [Suspect]
     Indication: HEPATITIS C
     Dosage: 300 MG;BID
     Dates: start: 20110915, end: 20110927
  29. PEGINTERFERON ALFA-2B [Suspect]
     Indication: HEPATITIS C
     Dosage: 300 MG;BID
     Dates: start: 20110928, end: 20111012

REACTIONS (7)
  - DIARRHOEA [None]
  - NAUSEA [None]
  - BLOOD CHLORIDE DECREASED [None]
  - BLOOD OSMOLARITY DECREASED [None]
  - INAPPROPRIATE ANTIDIURETIC HORMONE SECRETION [None]
  - VOMITING [None]
  - DECREASED APPETITE [None]
